FAERS Safety Report 5934934-3 (Version None)
Quarter: 2008Q4

REPORT INFORMATION
  Report Type: 
  Country: None (occurrence: None)
  Receive Date: 20081027
  Receipt Date: 20081014
  Transmission Date: 20090506
  Serious: Yes (Hospitalization)
  Sender: FDA-Public Use
  Company Number: WAES 0810AUT00002

PATIENT
  Age: 54 Year
  Sex: Female

DRUGS (14)
  1. INDOCIN [Suspect]
     Indication: HEADACHE
     Dosage: 25 MG DAILY PO, 50 MG DAILY PO, 50 MG/BID PO
     Route: 048
  2. INDOCIN [Suspect]
     Indication: HEADACHE
     Dosage: 25 MG DAILY PO, 50 MG DAILY PO, 50 MG/BID PO
     Route: 048
  3. INDOCIN [Suspect]
     Indication: HEADACHE
     Dosage: 25 MG DAILY PO, 50 MG DAILY PO, 50 MG/BID PO
     Route: 048
  4. INDOCIN [Suspect]
     Indication: HEADACHE
     Dosage: 25 MG DAILY PO, 50 MG DAILY PO, 50 MG/BID PO
     Route: 048
  5. INDOCIN [Suspect]
     Indication: HEADACHE
     Dosage: 25 MG DAILY PO, 50 MG DAILY PO, 50 MG/BID PO
     Route: 048
  6. INDOCIN [Suspect]
     Indication: HEADACHE
     Dosage: 25 MG DAILY PO, 50 MG DAILY PO, 50 MG/BID PO
     Route: 048
  7. INDOCIN [Suspect]
     Indication: HEADACHE
     Dosage: 25 MG DAILY PO, 50 MG DAILY PO, 50 MG/BID PO
     Route: 048
  8. INDOCIN [Suspect]
     Indication: HEADACHE
     Dosage: 25 MG DAILY PO, 50 MG DAILY PO, 50 MG/BID PO
     Route: 048
  9. INDOCIN [Suspect]
     Indication: HEADACHE
     Dosage: 25 MG DAILY PO, 50 MG DAILY PO, 50 MG/BID PO
     Route: 048
  10. INDOCIN [Suspect]
     Indication: HEADACHE
     Dosage: 25 MG DAILY PO, 50 MG DAILY PO, 50 MG/BID PO
     Route: 048
  11. INDOCIN [Suspect]
     Indication: HEADACHE
     Dosage: 25 MG DAILY PO, 50 MG DAILY PO, 50 MG/BID PO
     Route: 048
  12. INDOCIN [Suspect]
     Indication: HEADACHE
     Dosage: 25 MG DAILY PO, 50 MG DAILY PO, 50 MG/BID PO
     Route: 048
  13. INDOCIN [Suspect]
     Indication: HEADACHE
     Dosage: 25 MG DAILY PO, 50 MG DAILY PO, 50 MG/BID PO
     Route: 048
  14. INDOCIN [Suspect]
     Indication: HEADACHE
     Dosage: 25 MG DAILY PO, 50 MG DAILY PO, 50 MG/BID PO
     Route: 048

REACTIONS (2)
  - ABSCESS JAW [None]
  - DIZZINESS [None]
